FAERS Safety Report 6772133-6 (Version None)
Quarter: 2010Q2

REPORT INFORMATION
  Report Type: 
  Country: None (occurrence: None)
  Receive Date: 20100616
  Receipt Date: 20100615
  Transmission Date: 20101027
  Serious: Yes (Life-Threatening, Hospitalization)
  Sender: FDA-Public Use
  Company Number: B0660668A

PATIENT
  Age: 93 Year
  Sex: Female

DRUGS (9)
  1. CLAMOXYL [Suspect]
     Dosage: 3G PER DAY
     Route: 048
     Dates: start: 20100510, end: 20100518
  2. PREVISCAN [Suspect]
     Dosage: 20MG PER DAY
     Route: 048
     Dates: end: 20100518
  3. LERCAN [Concomitant]
     Dosage: 20MG UNKNOWN
     Route: 065
     Dates: end: 20100518
  4. TAHOR [Concomitant]
     Dosage: 10MG UNKNOWN
     Route: 065
     Dates: end: 20100518
  5. CORDARONE [Concomitant]
     Dosage: 1UNIT PER DAY
     Route: 065
  6. LEVOTHYROXINE SODIUM [Concomitant]
     Dosage: 100MCG PER DAY
     Route: 065
  7. FLUDEX [Concomitant]
     Dosage: 1UNIT PER DAY
     Route: 065
     Dates: end: 20100518
  8. NEXIUM [Concomitant]
     Dosage: 20MG UNKNOWN
     Route: 065
  9. UMULINE [Concomitant]
     Route: 058

REACTIONS (4)
  - ANAEMIA [None]
  - GASTROINTESTINAL HAEMORRHAGE [None]
  - INTERNATIONAL NORMALISED RATIO INCREASED [None]
  - MALAISE [None]
